FAERS Safety Report 16334656 (Version 3)
Quarter: 2020Q1

REPORT INFORMATION
  Report Type: Report from Study
  Country: US (occurrence: US)
  Receive Date: 20190520
  Receipt Date: 20200318
  Transmission Date: 20200409
  Serious: Yes (Life-Threatening, Hospitalization, Other)
  Sender: FDA-Public Use
  Company Number: PHEH2019US020577

PATIENT
  Age: 11 Year
  Sex: Male
  Weight: 44.2 kg

DRUGS (3)
  1. FLUDARABINE [Concomitant]
     Active Substance: FLUDARABINE PHOSPHATE
     Indication: CHEMOTHERAPY
     Dosage: 30 MG/M2
     Route: 042
     Dates: start: 20180129, end: 20180201
  2. CYCLOPHOSPHAMIDE. [Concomitant]
     Active Substance: CYCLOPHOSPHAMIDE
     Indication: CHEMOTHERAPY
     Dosage: 500 MG/M2
     Route: 042
     Dates: start: 20180129, end: 20180130
  3. KYMRIAH [Suspect]
     Active Substance: TISAGENLECLEUCEL
     Indication: B-CELL TYPE ACUTE LEUKAEMIA
     Dosage: 1.4 X 10E6 VIABLE CELLS
     Route: 042
     Dates: start: 20180206

REACTIONS (15)
  - Paraparesis [Unknown]
  - Hemiparesis [Unknown]
  - B-cell type acute leukaemia [Unknown]
  - Disease recurrence [Unknown]
  - Cytokine release syndrome [Recovered/Resolved]
  - Motor dysfunction [Unknown]
  - Pyrexia [Unknown]
  - Facial paralysis [Unknown]
  - Neurotoxicity [Unknown]
  - Platelet count decreased [Unknown]
  - Neutrophil count decreased [Unknown]
  - Haematocrit decreased [Unknown]
  - Hypogammaglobulinaemia [Unknown]
  - Minimal residual disease [Unknown]
  - Haemoglobin decreased [Unknown]

NARRATIVE: CASE EVENT DATE: 20180211
